FAERS Safety Report 16421806 (Version 4)
Quarter: 2019Q2

REPORT INFORMATION
  Report Type: Spontaneous
  Country: US (occurrence: US)
  Receive Date: 20190612
  Receipt Date: 20190622
  Transmission Date: 20190711
  Serious: Yes (Hospitalization, Other)
  Sender: FDA-Public Use
  Company Number: US-BRISTOL-MYERS SQUIBB COMPANY-BMS-2019-055148

PATIENT
  Sex: Female

DRUGS (1)
  1. ELIQUIS [Suspect]
     Active Substance: APIXABAN
     Indication: EMBOLISM VENOUS
     Dosage: 1 DOSAGE FORM, BID
     Route: 048
     Dates: start: 20190428

REACTIONS (5)
  - Thrombosis [Unknown]
  - Fatigue [Unknown]
  - Pulmonary thrombosis [Unknown]
  - Drug ineffective [Unknown]
  - Incorrect route of product administration [Unknown]
